FAERS Safety Report 8550789-5 (Version None)
Quarter: 2012Q3

REPORT INFORMATION
  Report Type: 
  Country: None (occurrence: None)
  Receive Date: 20120723
  Receipt Date: 20120723
  Transmission Date: 20120928
  Serious: Yes (Other)
  Sender: FDA-Public Use
  Company Number: None

PATIENT
  Sex: Female

DRUGS (2)
  1. ZYPREXA [Suspect]
  2. SEROQUEL [Suspect]

REACTIONS (3)
  - AGGRESSION [None]
  - DELUSION [None]
  - HOSTILITY [None]
